FAERS Safety Report 7971878-X (Version None)
Quarter: 2011Q4

REPORT INFORMATION
  Report Type: 
  Country: None (occurrence: None)
  Receive Date: 20111212
  Receipt Date: 20111209
  Transmission Date: 20120403
  Serious: Yes (Life-Threatening)
  Sender: FDA-Public Use
  Company Number: DE-BAYER-2011-118263

PATIENT
  Age: 75 Year
  Sex: Male

DRUGS (1)
  1. CIPROFLOXACIN [Suspect]
     Indication: DIVERTICULITIS
     Dosage: 400 MG, BID
     Route: 042
     Dates: start: 20110628, end: 20110630

REACTIONS (2)
  - DISORIENTATION [None]
  - CONFUSIONAL STATE [None]
